FAERS Safety Report 6639478-1 (Version None)
Quarter: 2010Q1

REPORT INFORMATION
  Report Type: 
  Country: None (occurrence: None)
  Receive Date: 20100318
  Receipt Date: 20100224
  Transmission Date: 20100710
  Serious: Yes (Other)
  Sender: FDA-Public Use
  Company Number: US-JNJFOC-20100301587

PATIENT
  Sex: Female

DRUGS (1)
  1. MOTRIN [Suspect]
     Indication: ARTHRALGIA
     Dosage: TAKEN AS NEEDED ^FOR YEARS^
     Route: 048

REACTIONS (3)
  - BARRETT'S OESOPHAGUS [None]
  - DRUG INEFFECTIVE [None]
  - THERAPEUTIC RESPONSE DECREASED [None]
